FAERS Safety Report 16081827 (Version 1)
Quarter: 2019Q1

REPORT INFORMATION
  Report Type: Spontaneous
  Country: BR (occurrence: BR)
  Receive Date: 20190316
  Receipt Date: 20190316
  Transmission Date: 20190418
  Serious: Yes (Life-Threatening)
  Sender: FDA-Public Use
  Company Number: PHHY2019BR060096

PATIENT
  Sex: Female
  Weight: 60 kg

DRUGS (2)
  1. ENTRESTO [Suspect]
     Active Substance: SACUBITRIL\VALSARTAN
     Indication: DYSPNOEA
  2. ENTRESTO [Suspect]
     Active Substance: SACUBITRIL\VALSARTAN
     Indication: CARDIOMEGALY
     Dosage: 1 DF, BID
     Route: 048

REACTIONS (4)
  - Malaise [Not Recovered/Not Resolved]
  - Product use in unapproved indication [Unknown]
  - Poor quality sleep [Not Recovered/Not Resolved]
  - Dyspnoea [Not Recovered/Not Resolved]
